FAERS Safety Report 15884042 (Version 2)
Quarter: 2019Q1

REPORT INFORMATION
  Report Type: Spontaneous
  Country: KR (occurrence: KR)
  Receive Date: 20190129
  Receipt Date: 20190206
  Transmission Date: 20190417
  Serious: Yes (Death, Other)
  Sender: FDA-Public Use
  Company Number: KR-009507513-1901KOR008968

PATIENT
  Sex: Female

DRUGS (15)
  1. PAMIRAY [Concomitant]
     Indication: COMPUTERISED TOMOGRAM
     Dosage: QUANTITY 1 DAYS 1
     Dates: start: 20181102, end: 20181130
  2. HIGHMOL [Concomitant]
     Dosage: QUANTITY 3 DAYS 1
     Dates: start: 20181102, end: 20181130
  3. LIDOCAINE HYDROCHLORIDE. [Concomitant]
     Active Substance: LIDOCAINE HYDROCHLORIDE
     Dosage: QUANTITY 1 DAYS 1
     Dates: start: 20181102, end: 20181130
  4. MAGNESIN (MAGNESIUM SULFATE) [Concomitant]
     Dosage: QUANTITY 1 DAYS 2
     Dates: start: 20181102, end: 20181130
  5. ISOTONIC SODIUM CHLORIDE [Concomitant]
     Active Substance: SODIUM CHLORIDE
     Dosage: UNK
  6. MVH INJECTION [Concomitant]
     Dosage: QUANTITY 1 DAYS 2
     Dates: start: 20181102, end: 20181130
  7. ISOTONIC SODIUM CHLORIDE [Concomitant]
     Active Substance: SODIUM CHLORIDE
     Dosage: UNK
     Dates: start: 20181102, end: 20181130
  8. FLAGYL [Concomitant]
     Active Substance: METRONIDAZOLE\METRONIDAZOLE HYDROCHLORIDE
     Dosage: QUANTITY 3 DAYS 14
     Dates: start: 20181102, end: 20181130
  9. POTASSIUM CHLORIDE DAIHAN [Concomitant]
     Dosage: QUANTITY 1 DAYS 6
     Dates: start: 20181102, end: 20181130
  10. DENOGAN [Concomitant]
     Active Substance: PROPACETAMOL HYDROCHLORIDE
     Dosage: QUANTITY 1 DAYS 1
     Dates: start: 20181102, end: 20181130
  11. LASIX [Concomitant]
     Active Substance: FUROSEMIDE
     Dosage: QUANTITY 1 DAYS 24
     Dates: start: 20181102, end: 20181130
  12. MG COMBI PERI 1 [Concomitant]
     Dosage: QUANTITY 1 DAYS 6
     Dates: start: 20181102, end: 20181130
  13. ISOTONIC SODIUM CHLORIDE [Concomitant]
     Active Substance: SODIUM CHLORIDE
     Dosage: UNK
     Dates: start: 20181102, end: 20181130
  14. KEYTRUDA [Suspect]
     Active Substance: PEMBROLIZUMAB
     Indication: OVARIAN CANCER
     Dosage: QUANTITY: 1, DAYS: 2
     Dates: start: 20181102, end: 20181130
  15. BC MORPHINE SULFATE [Concomitant]
     Dosage: QUANTITY 1 DAYS 1
     Dates: start: 20181102, end: 20181130

REACTIONS (3)
  - Acute kidney injury [Fatal]
  - Malignant neoplasm progression [Fatal]
  - Product use in unapproved indication [Unknown]

NARRATIVE: CASE EVENT DATE: 20181102
